FAERS Safety Report 5593429-X (Version None)
Quarter: 2008Q1

REPORT INFORMATION
  Report Type: 
  Country: None (occurrence: None)
  Receive Date: 20080114
  Receipt Date: 20080102
  Transmission Date: 20080703
  Serious: Yes (Death)
  Sender: FDA-Public Use
  Company Number: 2008S1000058

PATIENT
  Age: 25 Year
  Sex: Male

DRUGS (9)
  1. CIPROFLOXACIN [Suspect]
     Indication: DRUG USE FOR UNKNOWN INDICATION
  2. CLARITHROMYCIN [Suspect]
     Indication: DRUG USE FOR UNKNOWN INDICATION
  3. COMBIVIR [Suspect]
     Indication: HIV INFECTION
  4. EFAVIRENZ [Suspect]
     Indication: HIV INFECTION
  5. NEVIRAPINE [Suspect]
     Indication: HIV INFECTION
  6. TENOFOVIR DISOPROXIL FUMARATE [Suspect]
     Indication: HIV INFECTION
  7. IBUPROFEN [Suspect]
     Indication: PAIN IN EXTREMITY
  8. BACTRIM (SEPTRIN BALSAMICO) [Concomitant]
  9. LOPERAMIDE [Concomitant]

REACTIONS (2)
  - SEPSIS [None]
  - VANISHING BILE DUCT SYNDROME [None]
